FAERS Safety Report 16708016 (Version 1)
Quarter: 2019Q3

REPORT INFORMATION
  Report Type: Spontaneous
  Country: US (occurrence: US)
  Receive Date: 20190815
  Receipt Date: 20190815
  Transmission Date: 20191004
  Serious: Yes (Other)
  Sender: FDA-Public Use
  Company Number: US-LEXICON PHARMACEUTICALS, INC-19-1606-00797

PATIENT
  Age: 53 Year
  Sex: Female

DRUGS (19)
  1. PRED MILD [Concomitant]
     Active Substance: PREDNISOLONE ACETATE
  2. LEVOTHYROXIN [Concomitant]
     Active Substance: LEVOTHYROXINE
  3. DIPHENHYDRAMINE. [Concomitant]
     Active Substance: DIPHENHYDRAMINE
  4. TELOTRISTAT ETHYL [Suspect]
     Active Substance: TELOTRISTAT ETHYL
     Indication: CARCINOID SYNDROME
     Route: 048
     Dates: start: 20190709, end: 20190806
  5. PROMETHAZINE [Concomitant]
     Active Substance: PROMETHAZINE HYDROCHLORIDE
  6. PHENERGAN [Concomitant]
     Active Substance: PROMETHAZINE HYDROCHLORIDE
  7. VENLAFAXINE [Concomitant]
     Active Substance: VENLAFAXINE HYDROCHLORIDE
  8. SINGULAIR [Concomitant]
     Active Substance: MONTELUKAST SODIUM
  9. PROTONIX [Concomitant]
     Active Substance: PANTOPRAZOLE SODIUM
  10. ELIQUIS [Concomitant]
     Active Substance: APIXABAN
  11. BENZTROPINE. [Concomitant]
     Active Substance: BENZTROPINE
  12. PERPHENAZINE. [Concomitant]
     Active Substance: PERPHENAZINE
  13. FERROUS SULFATE. [Concomitant]
     Active Substance: FERROUS SULFATE
  14. ACYCLOVIR. [Concomitant]
     Active Substance: ACYCLOVIR
  15. OMEPRAZOLE. [Concomitant]
     Active Substance: OMEPRAZOLE
  16. MONTELUKAST [Concomitant]
     Active Substance: MONTELUKAST SODIUM
  17. GABAPENTIN. [Concomitant]
     Active Substance: GABAPENTIN
  18. PREDNISOLONE. [Concomitant]
     Active Substance: PREDNISOLONE
  19. SYSTANE (HYPROMELLOSE 2910 (4000 MPA.S)) [Concomitant]
     Active Substance: HYPROMELLOSE 2910 (4000 MPA.S)

REACTIONS (5)
  - Cystitis [Not Recovered/Not Resolved]
  - Atrial fibrillation [Unknown]
  - Dizziness postural [Unknown]
  - Depression [Not Recovered/Not Resolved]
  - Irritable bowel syndrome [Not Recovered/Not Resolved]

NARRATIVE: CASE EVENT DATE: 20190801
